FAERS Safety Report 21073476 (Version 1)
Quarter: 2022Q3

REPORT INFORMATION
  Report Type: Spontaneous
  Country: US (occurrence: US)
  Receive Date: 20220713
  Receipt Date: 20220713
  Transmission Date: 20221027
  Serious: Yes (Hospitalization)
  Sender: FDA-Public Use
  Company Number: US-STRIDES ARCOLAB LIMITED-2022SP008689

PATIENT
  Age: 44 Year
  Sex: Female
  Weight: 72.562 kg

DRUGS (7)
  1. METHOTREXATE [Suspect]
     Active Substance: METHOTREXATE
     Indication: Rheumatoid arthritis
     Dosage: UNK
     Route: 065
     Dates: start: 201501, end: 20170606
  2. METHOTREXATE [Suspect]
     Active Substance: METHOTREXATE
     Dosage: UNK, (ONE IN ONE WEEK)
     Route: 048
     Dates: start: 20170612, end: 20170911
  3. UPADACITINIB [Suspect]
     Active Substance: UPADACITINIB
     Indication: Rheumatoid arthritis
     Dosage: 15 MILLIGRAM, (15 MG, 1 IN 1 D)
     Route: 048
     Dates: start: 20170914, end: 20200607
  4. UPADACITINIB [Suspect]
     Active Substance: UPADACITINIB
     Dosage: 15 MILLIGRAM, (15 MG, 1 IN 1 D)
     Route: 048
     Dates: start: 20200608
  5. FOLIC ACID [Concomitant]
     Active Substance: FOLIC ACID
     Indication: Prophylaxis
     Dosage: UNK
     Route: 048
  6. FOLIC ACID [Concomitant]
     Active Substance: FOLIC ACID
     Dosage: 1 MILLIGRAM, QD (1MG, 1 IN 1D)
     Route: 065
     Dates: start: 201501
  7. TRAMADOL HYDROCHLORIDE [Concomitant]
     Active Substance: TRAMADOL HYDROCHLORIDE
     Indication: Rheumatoid arthritis
     Dosage: 50 MILLIGRAM, TID (50MG 3 IN 1 D)
     Route: 048
     Dates: start: 20151019

REACTIONS (1)
  - Nephrolithiasis [Recovered/Resolved]

NARRATIVE: CASE EVENT DATE: 20220426
